FAERS Safety Report 7410280-6 (Version None)
Quarter: 2011Q2

REPORT INFORMATION
  Report Type: 
  Country: None (occurrence: None)
  Receive Date: 20110412
  Receipt Date: 20101209
  Transmission Date: 20111010
  Serious: Yes (Hospitalization, Other)
  Sender: FDA-Public Use
  Company Number: US-BAYER-201023783NA

PATIENT
  Age: 48 Year
  Sex: Female
  Weight: 91 kg

DRUGS (12)
  1. WELLBUTRIN [Concomitant]
  2. PRAVASTATIN [Concomitant]
  3. CLONAZEPAM [Concomitant]
  4. ASCORBIC ACID [Concomitant]
  5. ZOLOFT [Concomitant]
  6. SERTRALINE HYDROCHLORIDE [Concomitant]
  7. SYNTHROID [Concomitant]
  8. NSAID'S [Concomitant]
  9. BUDEPRION [Concomitant]
  10. YASMIN [Suspect]
     Indication: PRODUCT USED FOR UNKNOWN INDICATION
  11. LEVOTHYROXINE [Concomitant]
  12. CLONOPIN [Concomitant]

REACTIONS (2)
  - DEEP VEIN THROMBOSIS [None]
  - INJURY [None]
